FAERS Safety Report 10006426 (Version 2)
Quarter: 2014Q1

REPORT INFORMATION
  Report Type: Spontaneous
  Country: US (occurrence: None)
  Receive Date: 20140311
  Receipt Date: 20140318
  Transmission Date: 20141002
  Serious: Yes (Other)
  Sender: FDA-Public Use
  Company Number: AUR-APL-2014-02299

PATIENT
  Age: 9 Year
  Sex: Female

DRUGS (1)
  1. TRIMETHOPRIM+SULFAMETHOXAZOLE [Suspect]
     Indication: URINARY TRACT INFECTION

REACTIONS (2)
  - Drug reaction with eosinophilia and systemic symptoms [None]
  - Haemolytic anaemia [None]
